FAERS Safety Report 6734476-1 (Version None)
Quarter: 2010Q2

REPORT INFORMATION
  Report Type: 
  Country: None (occurrence: None)
  Receive Date: 20100520
  Receipt Date: 20100506
  Transmission Date: 20101027
  Serious: Yes (Other)
  Sender: FDA-Public Use
  Company Number: US-ELI_LILLY_AND_COMPANY-US201005002776

PATIENT
  Age: 52 Year
  Sex: Male

DRUGS (3)
  1. EFFIENT [Suspect]
     Dosage: 10 MG, UNKNOWN
     Dates: start: 20100101
  2. TESTOSTERONE [Concomitant]
  3. ASPIRIN [Concomitant]
     Indication: PLATELET AGGREGATION INHIBITION

REACTIONS (3)
  - CARDIOMYOPATHY [None]
  - CONTUSION [None]
  - OEDEMA PERIPHERAL [None]
